FAERS Safety Report 5807992-4 (Version None)
Quarter: 2008Q3

REPORT INFORMATION
  Report Type: 
  Country: None (occurrence: None)
  Receive Date: 20080711
  Receipt Date: 20080708
  Transmission Date: 20090109
  Serious: Yes (Hospitalization)
  Sender: FDA-Public Use
  Company Number: US-GILEAD-2008-0017051

PATIENT
  Sex: Male

DRUGS (15)
  1. LETAIRIS [Suspect]
     Indication: PULMONARY HYPERTENSION
     Route: 048
     Dates: start: 20080603
  2. COUMADIN [Concomitant]
  3. PLAVIX [Concomitant]
  4. CELEBREX [Concomitant]
  5. NEXIUM [Concomitant]
  6. IMDUR [Concomitant]
  7. FUROSEMIDE [Concomitant]
  8. LISINOPRIL [Concomitant]
  9. DIGOXIN [Concomitant]
  10. ZETIA [Concomitant]
  11. ADVAIR DISKUS 100/50 [Concomitant]
  12. SINGULAIR [Concomitant]
  13. DUONEB [Concomitant]
  14. VYTORIN [Concomitant]
  15. URSODIOL [Concomitant]

REACTIONS (1)
  - BLOOD COUNT ABNORMAL [None]
